FAERS Safety Report 7659327-2 (Version None)
Quarter: 2011Q3

REPORT INFORMATION
  Report Type: 
  Country: None (occurrence: None)
  Receive Date: 20110802
  Receipt Date: 20110718
  Transmission Date: 20111222
  Serious: Yes (Other)
  Sender: FDA-Public Use
  Company Number: 2011MA008990

PATIENT
  Age: 85 Year
  Sex: Female

DRUGS (1)
  1. PAREGORIC W/ 1% NALOXONE SOLUTION [Suspect]
     Indication: PAIN
     Dosage: 2.5 MG;Q4H;SL
     Route: 060

REACTIONS (1)
  - ANGIOEDEMA [None]
